FAERS Safety Report 17898840 (Version 11)
Quarter: 2021Q3

REPORT INFORMATION
  Report Type: Report from Study
  Country: GB (occurrence: GB)
  Receive Date: 20200616
  Receipt Date: 20210723
  Transmission Date: 20211014
  Serious: Yes (Hospitalization, Other)
  Sender: FDA-Public Use
  Company Number: GB-BRISTOL-MYERS SQUIBB COMPANY-BMS-2020-038721

PATIENT
  Age: 77 Year
  Sex: Male

DRUGS (18)
  1. NIVOLUMAB [Suspect]
     Active Substance: NIVOLUMAB
     Dosage: 360 MILLIGRAM, Q.3WK.
     Route: 042
     Dates: start: 20200424
  2. ASPIRIN EC [Concomitant]
     Active Substance: ASPIRIN
     Indication: CEREBROVASCULAR ACCIDENT
     Dosage: 75 MILLIGRAM, QD
     Route: 048
     Dates: start: 2005
  3. FEROGLOBIN [COPPER;CYANOCOBALAMIN;FERROUS ASCORBATE;FOLIC ACID;PYRIDOX [Concomitant]
     Indication: VITAMIN B12 DEFICIENCY
     Dosage: 1 MILLIGRAM, QMO
     Route: 058
     Dates: start: 2010
  4. ATORVASTIN [Concomitant]
     Active Substance: ATORVASTATIN
     Indication: PROPHYLAXIS
     Dosage: 20 MILLIGRAM, QD
     Route: 048
     Dates: start: 2019
  5. PIRITON [Concomitant]
     Active Substance: CHLORPHENIRAMINE MALEATE
     Indication: RASH
     Dosage: 4 MILLIGRAM, TID
     Route: 048
     Dates: start: 20200423
  6. PREDNISOLONE. [Concomitant]
     Active Substance: PREDNISOLONE
     Indication: RASH
     Dosage: 35 MILLIGRAM, QD
     Route: 048
     Dates: start: 20200503, end: 20200506
  7. HYDROCORTISONE. [Concomitant]
     Active Substance: HYDROCORTISONE
     Indication: RASH
     Dosage: 1 PERCENT, TID
     Route: 061
     Dates: start: 20200423
  8. BEMPEGALDESLEUKIN [Suspect]
     Active Substance: BEMPEGALDESLEUKIN
     Indication: TRANSITIONAL CELL CARCINOMA
     Dosage: 0.53 MILLIGRAM, Q3WK
     Route: 042
     Dates: start: 20200420
  9. NIVOLUMAB [Suspect]
     Active Substance: NIVOLUMAB
     Indication: TRANSITIONAL CELL CARCINOMA
     Dosage: 360 MILLIGRAM, Q3WK
     Route: 042
     Dates: start: 20200420
  10. FLOXETINE [Concomitant]
     Active Substance: FLUOXETINE HYDROCHLORIDE
     Indication: DEPRESSION
     Dosage: 20 MILLIGRAM, QD
     Route: 048
     Dates: start: 2013
  11. MEROPENEM. [Concomitant]
     Active Substance: MEROPENEM
     Indication: NEUTROPENIA
     Dosage: 1 GRAM, QD
     Route: 058
     Dates: start: 20200505, end: 20200505
  12. MEROPENEM. [Concomitant]
     Active Substance: MEROPENEM
     Dosage: 1 GRAM, TID
     Route: 042
  13. LOPERAMIDE [Concomitant]
     Active Substance: LOPERAMIDE
     Indication: DIARRHOEA
     Dosage: 4 MILLIGRAM, PRN
     Route: 048
     Dates: start: 20200421
  14. BEMPEGALDESLEUKIN [Suspect]
     Active Substance: BEMPEGALDESLEUKIN
     Dosage: 0.49 MILLIGRAM, Q3WK
     Route: 042
     Dates: start: 20200601
  15. BEMPEGALDESLEUKIN [Suspect]
     Active Substance: BEMPEGALDESLEUKIN
     Dosage: 0.49 MILLIGRAM, Q3WK
     Route: 042
     Dates: start: 20200424
  16. COCODAMOL [Concomitant]
     Active Substance: ACETAMINOPHEN\CODEINE PHOSPHATE
     Indication: BACK PAIN
     Dosage: 530 MILLIGRAM, PRN
     Route: 048
     Dates: start: 202003
  17. LANSOPRAZOLE. [Concomitant]
     Active Substance: LANSOPRAZOLE
     Indication: PROPHYLAXIS
     Dosage: 30 MILLIGRAM, QD
     Route: 048
     Dates: start: 2013
  18. MEROPENEM. [Concomitant]
     Active Substance: MEROPENEM
     Dosage: 1 GRAM, QD
     Route: 058
     Dates: start: 20200506, end: 20200506

REACTIONS (3)
  - Fall [Recovered/Resolved]
  - Hypotension [Recovered/Resolved with Sequelae]
  - Haematuria [Recovered/Resolved]

NARRATIVE: CASE EVENT DATE: 20200605
